FAERS Safety Report 9517535 (Version 2)
Quarter: 2013Q3

REPORT INFORMATION
  Report Type: Report from Study
  Country: CA (occurrence: CA)
  Receive Date: 20130911
  Receipt Date: 20130930
  Transmission Date: 20140515
  Serious: Yes (Life-Threatening, Hospitalization)
  Sender: FDA-Public Use
  Company Number: CA-ROCHE-1272980

PATIENT
  Age: 45 Year
  Sex: Female

DRUGS (5)
  1. PERTUZUMAB [Suspect]
     Indication: HER-2 POSITIVE BREAST CANCER
     Dosage: SINGLE LOADING DOSE AS PER PROTOCOL. FUTURE DOSES ADMINISTERED ONCE EVERY 3 WEEKS.
     Route: 042
     Dates: start: 20130826
  2. TRASTUZUMAB [Suspect]
     Indication: HER-2 POSITIVE BREAST CANCER
     Dosage: SINGLE LOADING DOSE AS PER PROTOCOL. FUTURE DOSES ADMINISTERED ONCE EVERY 3 WEEKS.
     Route: 042
     Dates: start: 20130827
  3. DOCETAXEL [Suspect]
     Indication: HER-2 POSITIVE BREAST CANCER
     Dosage: LAST DOSE PRIOR TO SAE: 27/AUG/2013.
     Route: 042
     Dates: start: 20130827
  4. DOSTINEX [Concomitant]
     Route: 065
  5. DECADRON [Concomitant]
     Route: 065
     Dates: start: 20130826, end: 20130828

REACTIONS (1)
  - Febrile neutropenia [Recovering/Resolving]
